FAERS Safety Report 16726851 (Version 7)
Quarter: 2020Q4

REPORT INFORMATION
  Report Type: Spontaneous
  Country: US (occurrence: US)
  Receive Date: 20190821
  Receipt Date: 20201202
  Transmission Date: 20210113
  Serious: Yes (Hospitalization, Other)
  Sender: FDA-Public Use
  Company Number: US-AKCEA THERAPEUTICS-2019IS001653

PATIENT
  Age: 55 Year
  Sex: Male

DRUGS (3)
  1. ISSD (INTEGRATED SYRINGE SAFETY DEVICE) [Suspect]
     Active Substance: DEVICE
  2. TEGSEDI [Suspect]
     Active Substance: INOTERSEN SODIUM
     Route: 058
  3. TEGSEDI [Suspect]
     Active Substance: INOTERSEN SODIUM
     Indication: HEREDITARY NEUROPATHIC AMYLOIDOSIS
     Route: 058

REACTIONS (19)
  - Cerebral ischaemia [Unknown]
  - Chest pain [Unknown]
  - Bacterial test positive [Unknown]
  - Cerebellar infarction [Unknown]
  - Protein urine present [Unknown]
  - Urine abnormality [Unknown]
  - Fungal test positive [Unknown]
  - Hemiparaesthesia [Unknown]
  - Nitrite urine present [Unknown]
  - Renal impairment [Recovered/Resolved]
  - White matter lesion [Unknown]
  - Glomerular filtration rate decreased [Recovering/Resolving]
  - Urine protein/creatinine ratio increased [Unknown]
  - Urinary casts [Unknown]
  - Magnetic resonance imaging brain abnormal [Unknown]
  - Cerebrovascular accident [Recovered/Resolved]
  - Blood creatinine increased [Unknown]
  - Headache [Not Recovered/Not Resolved]
  - Glucose urine present [Unknown]

NARRATIVE: CASE EVENT DATE: 20190730
